FAERS Safety Report 8335843-5 (Version None)
Quarter: 2012Q2

REPORT INFORMATION
  Report Type: 
  Country: None (occurrence: None)
  Receive Date: 20120501
  Receipt Date: 20120501
  Transmission Date: 20120825
  Serious: No
  Sender: FDA-Public Use
  Company Number: None

PATIENT
  Age: 58 Year
  Sex: Male

DRUGS (2)
  1. PEGASYS [Suspect]
     Dosage: 180MCG PFS ONCE A WEEK SUBCUTANEOUS
     Route: 058
     Dates: start: 20110803, end: 20120301
  2. RIBASPHERE [Suspect]
     Dosage: 600 MG TWICE DAILY ORAL
     Route: 048
     Dates: start: 20110803, end: 20120301

REACTIONS (3)
  - NAUSEA [None]
  - DISTURBANCE IN ATTENTION [None]
  - INSOMNIA [None]
